FAERS Safety Report 14239699 (Version 5)
Quarter: 2019Q1

REPORT INFORMATION
  Report Type: Report from Study
  Country: CA (occurrence: CA)
  Receive Date: 20171130
  Receipt Date: 20190226
  Transmission Date: 20190417
  Serious: Yes (Other)
  Sender: FDA-Public Use
  Company Number: CA-GLAXOSMITHKLINE-CA2017GSK181336

PATIENT
  Age: 67 Year
  Sex: Female

DRUGS (4)
  1. MEPOLIZUMAB [Suspect]
     Active Substance: MEPOLIZUMAB
     Dosage: 100 MG, Z
     Route: 042
  2. PREDNISONE. [Suspect]
     Active Substance: PREDNISONE
     Indication: PRODUCT USED FOR UNKNOWN INDICATION
     Dosage: UNK
     Dates: start: 201703
  3. MEPOLIZUMAB [Suspect]
     Active Substance: MEPOLIZUMAB
     Indication: ASTHMA
     Dosage: 100 MG, Z
     Route: 042
     Dates: start: 20171101
  4. MEPOLIZUMAB [Suspect]
     Active Substance: MEPOLIZUMAB
     Dosage: 100 MG, Z
     Route: 042

REACTIONS (14)
  - Psoriasis [Unknown]
  - Agitation [Unknown]
  - Accidental overdose [Unknown]
  - Diabetes mellitus [Unknown]
  - Fatigue [Unknown]
  - Stress [Unknown]
  - Diabetes mellitus inadequate control [Unknown]
  - Cataract [Unknown]
  - Headache [Not Recovered/Not Resolved]
  - Vision blurred [Unknown]
  - Arthritis [Not Recovered/Not Resolved]
  - Blood glucose fluctuation [Unknown]
  - Pancreatic disorder [Unknown]
  - Weight decreased [Unknown]

NARRATIVE: CASE EVENT DATE: 20171119
